FAERS Safety Report 6648303-4 (Version None)
Quarter: 2010Q1

REPORT INFORMATION
  Report Type: 
  Country: None (occurrence: None)
  Receive Date: 20100324
  Receipt Date: 20100319
  Transmission Date: 20100710
  Serious: Yes (Death)
  Sender: FDA-Public Use
  Company Number: DE-BAYER-201015880GPV

PATIENT
  Age: 63 Year
  Sex: Male
  Weight: 68 kg

DRUGS (14)
  1. NEXAVAR [Suspect]
     Indication: HEPATIC NEOPLASM MALIGNANT
     Route: 048
     Dates: start: 20100112, end: 20100119
  2. NEXAVAR [Suspect]
     Route: 048
     Dates: start: 20100104, end: 20100111
  3. NEXAVAR [Suspect]
     Route: 048
     Dates: start: 20100121
  4. PANTOPRAZOLE [Concomitant]
     Dosage: TOTAL DAILY DOSE: 40 MG
     Route: 048
     Dates: end: 20100125
  5. BISOHEXAL [Concomitant]
     Dosage: TOTAL DAILY DOSE: 5 MG
     Route: 048
     Dates: end: 20100125
  6. RAMIPRIL [Concomitant]
     Dosage: TOTAL DAILY DOSE: 5 MG
     Route: 048
     Dates: end: 20100125
  7. HYDROCHLOROTHIAZIDE [Concomitant]
     Dosage: AS USED: 12.5 MG
     Route: 048
     Dates: end: 20100125
  8. VERAPAMIL [Concomitant]
     Route: 048
     Dates: end: 20100125
  9. IBUPROFEN TABLETS [Concomitant]
     Route: 048
     Dates: start: 20091201, end: 20100125
  10. PALLADONE [Concomitant]
     Dosage: UP TO 17.3 MG DAILY
     Route: 048
     Dates: start: 20091201, end: 20100125
  11. FOLSAEURE [Concomitant]
     Dosage: TOTAL DAILY DOSE: 5 MG
     Route: 048
     Dates: start: 20091201, end: 20100125
  12. LACTULOSE [Concomitant]
     Dosage: TOTAL DAILY DOSE: 10 MG
     Route: 048
     Dates: start: 20091201, end: 20100125
  13. MCP [Concomitant]
     Route: 048
     Dates: start: 20100121, end: 20100125
  14. ZOMETA [Concomitant]
     Dates: start: 20100104, end: 20100104

REACTIONS (4)
  - DECREASED APPETITE [None]
  - HEPATIC NEOPLASM MALIGNANT [None]
  - NAUSEA [None]
  - PAIN [None]
